FAERS Safety Report 5768038-X (Version None)
Quarter: 2008Q2

REPORT INFORMATION
  Report Type: 
  Country: None (occurrence: None)
  Receive Date: 20080612
  Receipt Date: 20080314
  Transmission Date: 20081010
  Serious: No
  Sender: FDA-Public Use
  Company Number: US-ASTRAZENECA-2008UW05258

PATIENT
  Age: 46 Year
  Sex: Female

DRUGS (4)
  1. FASLODEX [Suspect]
     Route: 030
  2. ACIPHEX [Concomitant]
  3. REGLAN [Concomitant]
  4. ADVIL PM [Concomitant]

REACTIONS (1)
  - APHTHOUS STOMATITIS [None]
